FAERS Safety Report 15183883 (Version 1)
Quarter: 2018Q3

REPORT INFORMATION
  Report Type: Spontaneous
  Country: SG (occurrence: SG)
  Receive Date: 20180723
  Receipt Date: 20180723
  Transmission Date: 20181010
  Serious: Yes (Hospitalization, Other)
  Sender: FDA-Public Use
  Company Number: SG-MYLANLABS-2018M1054261

PATIENT
  Age: 27 Year
  Sex: Male

DRUGS (12)
  1. CABERGOLINE. [Suspect]
     Active Substance: CABERGOLINE
     Route: 048
  2. THYROXINE [Concomitant]
     Active Substance: LEVOTHYROXINE
     Route: 065
  3. CABERGOLINE. [Suspect]
     Active Substance: CABERGOLINE
     Route: 048
  4. CABERGOLINE. [Suspect]
     Active Substance: CABERGOLINE
     Route: 048
  5. CABERGOLINE. [Suspect]
     Active Substance: CABERGOLINE
     Indication: PROLACTIN-PRODUCING PITUITARY TUMOUR
     Dosage: AT BEDTIME
     Route: 048
  6. THYROXINE [Concomitant]
     Active Substance: LEVOTHYROXINE
     Indication: THYROXINE THERAPY
     Dosage: EVERY MORNING
     Route: 065
  7. THYROXINE [Concomitant]
     Active Substance: LEVOTHYROXINE
     Dosage: EVERY MORNING
     Route: 065
  8. CABERGOLINE. [Suspect]
     Active Substance: CABERGOLINE
     Route: 048
  9. CABERGOLINE. [Suspect]
     Active Substance: CABERGOLINE
     Route: 048
  10. CABERGOLINE. [Suspect]
     Active Substance: CABERGOLINE
     Dosage: 1 MG ON TUESDAY AND REMAINING 0.5 MG ON FRIDAY.
     Route: 048
  11. CABERGOLINE. [Suspect]
     Active Substance: CABERGOLINE
     Route: 048
  12. THYROXINE [Concomitant]
     Active Substance: LEVOTHYROXINE
     Route: 065

REACTIONS (3)
  - Tricuspid valve incompetence [Recovered/Resolved]
  - Fibrosis [Recovered/Resolved]
  - Cardiac valve sclerosis [Recovered/Resolved]
